FAERS Safety Report 5880487-8 (Version None)
Quarter: 2008Q3

REPORT INFORMATION
  Report Type: 
  Country: None (occurrence: None)
  Receive Date: 20080912
  Receipt Date: 20080606
  Transmission Date: 20090109
  Serious: No
  Sender: FDA-Public Use
  Company Number: US-ABBOTT-08P-163-0452987-00

PATIENT
  Age: 26 Year
  Sex: Female

DRUGS (3)
  1. HUMIRA [Suspect]
     Indication: PSORIASIS
     Dates: start: 20071025, end: 20080306
  2. INFLIXIMAB [Suspect]
     Indication: PSORIASIS
  3. PREDNISONE TAB [Concomitant]
     Indication: ECZEMA
     Route: 048

REACTIONS (3)
  - ECZEMA [None]
  - HYPERSENSITIVITY [None]
  - PSORIASIS [None]
